FAERS Safety Report 6560129-9 (Version None)
Quarter: 2010Q1

REPORT INFORMATION
  Report Type: 
  Country: None (occurrence: None)
  Receive Date: 20100129
  Receipt Date: 20050111
  Transmission Date: 20100710
  Serious: No
  Sender: FDA-Public Use
  Company Number: US-ALLERGAN-200410877

PATIENT
  Age: 66 Year
  Sex: Male

DRUGS (4)
  1. BOTOX [Suspect]
     Indication: MUSCLE SPASMS
     Route: 030
     Dates: start: 20041115
  2. IBUPROFEN [Concomitant]
     Indication: PAIN
     Route: 048
     Dates: start: 20041014
  3. PROPO-N/APAP [Concomitant]
     Indication: PAIN
     Route: 048
     Dates: start: 20041014
  4. DESIPRAMINE [Concomitant]
     Indication: PAIN
     Dates: start: 20041126

REACTIONS (8)
  - ABDOMINAL DISCOMFORT [None]
  - BLINDNESS [None]
  - DIARRHOEA [None]
  - DIZZINESS [None]
  - FEELING ABNORMAL [None]
  - INJECTION SITE PAIN [None]
  - INJECTION SITE PRURITUS [None]
  - SWELLING FACE [None]
